FAERS Safety Report 8075420-7 (Version None)
Quarter: 2012Q1

REPORT INFORMATION
  Report Type: 
  Country: None (occurrence: None)
  Receive Date: 20120127
  Receipt Date: 20120120
  Transmission Date: 20120608
  Serious: No
  Sender: FDA-Public Use
  Company Number: JP-PFIZER INC-2011287868

PATIENT
  Age: 74 Year
  Sex: Female
  Weight: 54 kg

DRUGS (5)
  1. NORVASC [Concomitant]
     Dosage: 5 MG, 1X/DAY
     Route: 048
     Dates: start: 20100601
  2. SUTENT [Suspect]
     Indication: RENAL CANCER
     Dosage: 37.5 MG, 1X/DAY
     Route: 048
     Dates: start: 20100708, end: 20100720
  3. SUTENT [Suspect]
     Dosage: 25 MG, 1X/DAY
     Route: 048
     Dates: start: 20100727, end: 20100802
  4. MAGNESIUM OXIDE [Concomitant]
     Dosage: 5 G, 3X/DAY
     Route: 048
     Dates: start: 20100601
  5. LAC B [Concomitant]
     Dosage: 1 G, 3X/DAY
     Route: 048
     Dates: start: 20100601

REACTIONS (3)
  - PLATELET COUNT DECREASED [None]
  - NEUTROPENIA [None]
  - SYNCOPE [None]
